FAERS Safety Report 7396697-7 (Version None)
Quarter: 2011Q2

REPORT INFORMATION
  Report Type: 
  Country: None (occurrence: None)
  Receive Date: 20110406
  Receipt Date: 20110328
  Transmission Date: 20111010
  Serious: Yes (Life-Threatening, Disabling)
  Sender: FDA-Public Use
  Company Number: JP-ROCHE-765080

PATIENT
  Sex: Female

DRUGS (4)
  1. TAMIFLU [Suspect]
     Indication: INFLUENZA
     Route: 048
     Dates: start: 20080101
  2. TAMIFLU [Suspect]
     Route: 048
     Dates: start: 20110102, end: 20110102
  3. TAMIFLU [Suspect]
     Route: 048
     Dates: start: 20110103, end: 20110106
  4. COCARL [Concomitant]
     Dosage: NOTE: SINGLE USE
     Route: 048
     Dates: start: 20110102, end: 20110107

REACTIONS (2)
  - PULMONARY FIBROSIS [None]
  - PNEUMONIA [None]
